FAERS Safety Report 6727719-1 (Version None)
Quarter: 2010Q2

REPORT INFORMATION
  Report Type: 
  Country: None (occurrence: None)
  Receive Date: 20100512
  Receipt Date: 20100226
  Transmission Date: 20101027
  Serious: No
  Sender: FDA-Public Use
  Company Number: 1000012149

PATIENT
  Age: 52 Year
  Sex: Female

DRUGS (11)
  1. SAVELLA [Suspect]
     Indication: FIBROMYALGIA
     Dosage: 12.5 MG (12.5 MG, 1 IN 1 D), ORAL ; 25 MG (12.5 MG, 2 IN 1 D), ORAL ;  50 MG (25 MG, 2 IN 1 D), ORAL
     Route: 048
     Dates: start: 20100217, end: 20100217
  2. SAVELLA [Suspect]
     Indication: FIBROMYALGIA
     Dosage: 12.5 MG (12.5 MG, 1 IN 1 D), ORAL ; 25 MG (12.5 MG, 2 IN 1 D), ORAL ;  50 MG (25 MG, 2 IN 1 D), ORAL
     Route: 048
     Dates: start: 20100218, end: 20100219
  3. SAVELLA [Suspect]
     Indication: FIBROMYALGIA
     Dosage: 12.5 MG (12.5 MG, 1 IN 1 D), ORAL ; 25 MG (12.5 MG, 2 IN 1 D), ORAL ;  50 MG (25 MG, 2 IN 1 D), ORAL
     Route: 048
     Dates: start: 20100220, end: 20100223
  4. SAVELLA [Suspect]
     Indication: FIBROMYALGIA
     Dosage: 100 MG (50 MG, 2 IN 1 D), ORAL
     Route: 048
     Dates: start: 20100224, end: 20100226
  5. METHADONE [Concomitant]
  6. XANAX [Concomitant]
  7. PAROXETINE HCL [Concomitant]
  8. TRIPTANS [Concomitant]
  9. DILACOR XR [Concomitant]
  10. ABILIFY [Concomitant]
  11. DIAZEPAM [Concomitant]

REACTIONS (1)
  - HALLUCINATION [None]
